FAERS Safety Report 4981039-4 (Version None)
Quarter: 2006Q2

REPORT INFORMATION
  Report Type: 
  Country: None (occurrence: None)
  Receive Date: 20060418
  Receipt Date: 20060403
  Transmission Date: 20061013
  Serious: Yes (Disabling, Other)
  Sender: FDA-Public Use
  Company Number: US200601005510

PATIENT
  Age: 86 Year
  Sex: Female

DRUGS (3)
  1. EVISTA [Suspect]
     Indication: OSTEOPOROSIS
     Dosage: ORAL
     Route: 048
  2. EYE DROPS (TETRYZOLINE HYDROCHLORIDE) [Concomitant]
  3. ANALGESICS [Concomitant]

REACTIONS (5)
  - ACTIVITIES OF DAILY LIVING IMPAIRED [None]
  - BLINDNESS UNILATERAL [None]
  - FALL [None]
  - JOINT INJURY [None]
  - NAIL HYPERTROPHY [None]
